FAERS Safety Report 4954374-3 (Version None)
Quarter: 2006Q1

REPORT INFORMATION
  Report Type: 
  Country: None (occurrence: None)
  Receive Date: 20060327
  Receipt Date: 20051123
  Transmission Date: 20060701
  Serious: Yes (Hospitalization, Disabling)
  Sender: FDA-Public Use
  Company Number: US-MERCK-0511USA04014

PATIENT
  Age: 44 Year
  Sex: Female
  Weight: 61 kg

DRUGS (5)
  1. VIOXX [Suspect]
     Indication: ARTHRITIS
     Route: 048
     Dates: start: 20020805, end: 20040701
  2. VIOXX [Suspect]
     Route: 048
     Dates: start: 20020805, end: 20040701
  3. VIOXX [Suspect]
     Route: 048
     Dates: start: 20020805, end: 20040701
  4. PREDNISONE [Concomitant]
     Indication: ARTHRITIS
     Route: 065
     Dates: start: 20020731, end: 20040101
  5. ACETAMINOPHEN AND PROPOXYPHENE NAPSYLATE [Concomitant]
     Indication: PAIN
     Route: 065
     Dates: start: 20011108, end: 20020101

REACTIONS (15)
  - ABDOMINAL PAIN UPPER [None]
  - ASTHMA [None]
  - BLOOD CHOLESTEROL INCREASED [None]
  - CARDIAC DISORDER [None]
  - CARDIAC FAILURE CONGESTIVE [None]
  - CHEST PAIN [None]
  - FIBROMYALGIA [None]
  - HYPERTENSION [None]
  - MALARIA [None]
  - MYOCARDIAL INFARCTION [None]
  - PAIN [None]
  - PAIN IN EXTREMITY [None]
  - RHEUMATOID ARTHRITIS [None]
  - STRESS FRACTURE [None]
  - SWELLING [None]
